FAERS Safety Report 24947561 (Version 1)
Quarter: 2025Q1

REPORT INFORMATION
  Report Type: Spontaneous
  Country: AU (occurrence: AU)
  Receive Date: 20250210
  Receipt Date: 20250210
  Transmission Date: 20250408
  Serious: Yes (Other)
  Sender: VIIV
  Company Number: AU-VIIV HEALTHCARE-AU2025014698

PATIENT

DRUGS (1)
  1. DOVATO [Suspect]
     Active Substance: DOLUTEGRAVIR SODIUM\LAMIVUDINE
     Indication: HIV infection
     Dates: end: 202412

REACTIONS (1)
  - Glomerulonephritis chronic [Recovering/Resolving]
